FAERS Safety Report 13655146 (Version 2)
Quarter: 2017Q3

REPORT INFORMATION
  Report Type: Spontaneous
  Country: US (occurrence: US)
  Receive Date: 20170615
  Receipt Date: 20170913
  Transmission Date: 20171127
  Serious: Yes (Hospitalization)
  Sender: FDA-Public Use
  Company Number: PHEH2017US017555

PATIENT
  Age: 74 Year
  Sex: Male
  Weight: 80.3 kg

DRUGS (1)
  1. VOTRIENT [Suspect]
     Active Substance: PAZOPANIB HYDROCHLORIDE
     Indication: RENAL CELL CARCINOMA
     Dosage: 800 MG, QD
     Route: 048
     Dates: start: 20170420, end: 20170522

REACTIONS (8)
  - Abdominal distension [Unknown]
  - Abdominal pain upper [Unknown]
  - Constipation [Unknown]
  - Ageusia [Unknown]
  - Dysuria [Unknown]
  - Dyspepsia [Unknown]
  - Pancreatitis [Recovered/Resolved]
  - Dyspnoea [Unknown]

NARRATIVE: CASE EVENT DATE: 20170522
